FAERS Safety Report 5179050-6 (Version None)
Quarter: 2006Q4

REPORT INFORMATION
  Report Type: 
  Country: None (occurrence: None)
  Receive Date: 20061208
  Receipt Date: 20061204
  Transmission Date: 20070319
  Serious: Yes (Death, Hospitalization)
  Sender: FDA-Public Use
  Company Number: TCI2003A00531

PATIENT
  Age: 72 Year
  Sex: Male

DRUGS (2)
  1. LEUPROLIDE ACETATE [Suspect]
     Indication: PROSTATE CANCER
     Dosage: 3.75 MG (3.75 MG, 1 IN 28 D)
     Route: 058
     Dates: start: 20030128, end: 20030212
  2. CASODEX (BICALUMTAMIDE) (TABLETS) [Concomitant]

REACTIONS (5)
  - CREPITATIONS [None]
  - DYSPNOEA [None]
  - INTERSTITIAL LUNG DISEASE [None]
  - PNEUMOTHORAX [None]
  - RALES [None]
